FAERS Safety Report 16813546 (Version 1)
Quarter: 2019Q3

REPORT INFORMATION
  Report Type: Report from Study
  Country: None (occurrence: AU)
  Receive Date: 20190917
  Receipt Date: 20190917
  Transmission Date: 20191005
  Serious: Yes (Other)
  Sender: FDA-Public Use
  Company Number: AU-ABBVIE-19K-008-2922074-00

PATIENT
  Sex: Female

DRUGS (1)
  1. HUMIRA [Suspect]
     Active Substance: ADALIMUMAB
     Indication: RHEUMATOID ARTHRITIS
     Route: 058
     Dates: end: 2019

REACTIONS (4)
  - Tuberculosis gastrointestinal [Unknown]
  - Joint swelling [Unknown]
  - Gait disturbance [Unknown]
  - Injection site bruising [Unknown]

NARRATIVE: CASE EVENT DATE: 2019
